FAERS Safety Report 25465368 (Version 1)
Quarter: 2025Q2

REPORT INFORMATION
  Report Type: Spontaneous
  Country: US (occurrence: US)
  Receive Date: 20250622
  Receipt Date: 20250622
  Transmission Date: 20250716
  Serious: Yes (Hospitalization, Other)
  Sender: AMGEN
  Company Number: US-AMGEN-USASP2025119606

PATIENT
  Age: 70 Year
  Sex: Male
  Weight: 69.84 kg

DRUGS (13)
  1. XGEVA [Suspect]
     Active Substance: DENOSUMAB
     Indication: Product used for unknown indication
     Route: 065
  2. PREDNISONE [Suspect]
     Active Substance: PREDNISONE
     Indication: Product used for unknown indication
     Route: 065
  3. JAKAFI [Suspect]
     Active Substance: RUXOLITINIB
     Indication: Polycythaemia vera
     Dosage: 15 MILLIGRAM, BID
     Route: 048
     Dates: start: 20210604
  4. ABIRATERONE ACETATE [Suspect]
     Active Substance: ABIRATERONE ACETATE
     Indication: Product used for unknown indication
     Route: 065
  5. ELIQUIS [Concomitant]
     Active Substance: APIXABAN
  6. DONEPEZIL [Concomitant]
     Active Substance: DONEPEZIL
  7. TAMSULOSIN [Concomitant]
     Active Substance: TAMSULOSIN
  8. FOLIC ACID [Concomitant]
     Active Substance: FOLIC ACID
  9. K PHOS ORIGINAL [Concomitant]
     Active Substance: POTASSIUM PHOSPHATE, MONOBASIC
  10. KEPPRA [Concomitant]
     Active Substance: LEVETIRACETAM
  11. ERLEADA [Concomitant]
     Active Substance: APALUTAMIDE
  12. LUPRON DEPOT [Concomitant]
     Active Substance: LEUPROLIDE ACETATE
  13. CEFPODOXIME [Concomitant]
     Active Substance: CEFPODOXIME

REACTIONS (8)
  - Escherichia urinary tract infection [Recovering/Resolving]
  - Blood magnesium decreased [Recovering/Resolving]
  - Blood phosphorus decreased [Recovering/Resolving]
  - Blood calcium decreased [Recovering/Resolving]
  - Prostate cancer metastatic [Unknown]
  - Mental impairment [Unknown]
  - Kidney infection [Unknown]
  - Confusional state [Recovering/Resolving]

NARRATIVE: CASE EVENT DATE: 20250401
